FAERS Safety Report 20783259 (Version 1)
Quarter: 2022Q2

REPORT INFORMATION
  Report Type: Spontaneous
  Country: US (occurrence: US)
  Receive Date: 20220504
  Receipt Date: 20220504
  Transmission Date: 20220721
  Serious: No
  Sender: FDA-Public Use
  Company Number: US-PFIZER INC-202200269149

PATIENT
  Sex: Male
  Weight: 95.25 kg

DRUGS (1)
  1. PHENELZINE SULFATE [Suspect]
     Active Substance: PHENELZINE SULFATE
     Indication: Depression
     Dosage: 15 MG
     Dates: start: 2017

REACTIONS (1)
  - Therapeutic product effect incomplete [Unknown]
